FAERS Safety Report 14600917 (Version 4)
Quarter: 2018Q1

REPORT INFORMATION
  Report Type: Report from Study
  Country: JP (occurrence: JP)
  Receive Date: 20180305
  Receipt Date: 20180315
  Transmission Date: 20180509
  Serious: Yes (Hospitalization, Other)
  Sender: FDA-Public Use
  Company Number: JP-009507513-1802JPN003452J

PATIENT
  Age: 76 Year
  Sex: Male
  Weight: 67 kg

DRUGS (5)
  1. RUPATADINE [Concomitant]
     Active Substance: RUPATADINE
     Indication: DERMATITIS
     Dosage: UNK
     Route: 048
  2. LOXONIN [Concomitant]
     Active Substance: LOXOPROFEN SODIUM
     Indication: MYALGIA
     Dosage: UNK, PRN
     Route: 048
  3. CALONAL [Concomitant]
     Active Substance: ACETAMINOPHEN
     Indication: MYALGIA
     Dosage: UNK, PRN
     Route: 048
  4. ANTEBATE [Concomitant]
     Active Substance: BETAMETHASONE DIPROPIONATE
     Indication: DERMATITIS
     Dosage: UNK
     Route: 051
  5. KEYTRUDA [Suspect]
     Active Substance: PEMBROLIZUMAB
     Indication: SQUAMOUS CELL CARCINOMA OF LUNG
     Dosage: 200 MG, Q3W
     Route: 041
     Dates: start: 20170410, end: 20180201

REACTIONS (9)
  - Renal impairment [Recovering/Resolving]
  - Myalgia [Unknown]
  - Platelet count decreased [Not Recovered/Not Resolved]
  - Pyrexia [Recovered/Resolved]
  - Head injury [Unknown]
  - Conjunctival hyperaemia [Unknown]
  - Epistaxis [Unknown]
  - Erythema [Recovered/Resolved]
  - Malaise [Unknown]

NARRATIVE: CASE EVENT DATE: 201802
